FAERS Safety Report 7889663-6 (Version None)
Quarter: 2011Q4

REPORT INFORMATION
  Report Type: 
  Country: None (occurrence: None)
  Receive Date: 20111103
  Receipt Date: 20111031
  Transmission Date: 20120403
  Serious: No
  Sender: FDA-Public Use
  Company Number: US-PFIZER INC-2011266947

PATIENT
  Age: 14 Year
  Sex: Male

DRUGS (3)
  1. IBUPROFEN (ADVIL) [Suspect]
     Indication: OROPHARYNGEAL PAIN
     Dosage: UNK
  2. IBUPROFEN (ADVIL) [Suspect]
     Indication: HEADACHE
  3. IBUPROFEN (ADVIL) [Suspect]
     Indication: PYREXIA

REACTIONS (1)
  - DRUG EFFECT DECREASED [None]
